FAERS Safety Report 6932871-9 (Version None)
Quarter: 2010Q3

REPORT INFORMATION
  Report Type: 
  Country: None (occurrence: None)
  Receive Date: 20100819
  Receipt Date: 20100315
  Transmission Date: 20110219
  Serious: Yes (Other)
  Sender: FDA-Public Use
  Company Number: JP-B.I. PHARMACEUTICALS,INC./RIDGEFIELD-2010-DE-01359GD

PATIENT
  Age: 86 Year
  Sex: Male

DRUGS (1)
  1. MELOXICAM [Suspect]
     Indication: DESMOID TUMOUR
     Dosage: 10 MG
     Route: 048

REACTIONS (2)
  - DIARRHOEA [None]
  - PNEUMONIA [None]
